FAERS Safety Report 8909496 (Version 2)
Quarter: 2012Q4

REPORT INFORMATION
  Report Type: Spontaneous
  Country: US (occurrence: None)
  Receive Date: 20121109
  Receipt Date: 20121116
  Transmission Date: 20130627
  Serious: Yes (Hospitalization, Other)
  Sender: FDA-Public Use
  Company Number: 2012-002397

PATIENT
  Age: 62 Year
  Sex: Female
  Weight: 65.9 kg

DRUGS (16)
  1. ACTONEL [Suspect]
     Indication: OSTEOPOROSIS
     Dosage: Once weekly,
     Route: 048
     Dates: start: 20020926, end: 2003
  2. ACTONEL [Suspect]
     Indication: OSTEOPOROSIS
     Dosage: Once weekly,
     Route: 048
     Dates: start: 2004, end: 20060504
  3. FOSAMAX (ALENDRONATE SODIUM) [Suspect]
     Indication: OSTEOPOROSIS
     Route: 048
     Dates: start: 20080304, end: 20081215
  4. FOSAMAX (ALENDRONATE SODIUM) [Suspect]
     Indication: OSTEOPOROSIS PROPHYLAXIS
     Route: 048
     Dates: start: 20080304, end: 20081215
  5. ALENDRONATE [Suspect]
     Indication: OSTEOPOROSIS
     Dosage: once weekly
     Route: 048
     Dates: start: 20081215, end: 20100811
  6. ALENDRONATE [Suspect]
     Indication: OSTEOPOROSIS PROPHYLAXIS
     Dosage: once weekly
     Route: 048
     Dates: start: 20081215, end: 20100811
  7. FOSAMAX PLUS D [Suspect]
     Indication: OSTEOPOROSIS
     Route: 048
     Dates: start: 20060504, end: 20080304
  8. FOSAMAX PLUS D [Suspect]
     Route: 048
     Dates: start: 20060504, end: 20080304
  9. RYZOLT [Suspect]
  10. ACTIVELLA (ESTRADIOL, NORETHISTERONE ACETATE) [Concomitant]
  11. IMITREX  /01044801/ (SUMATRIPTAN) [Concomitant]
  12. HYDROCODONE BITARTRATE AND ACETAMINOPHEN (HYDROCODONE BITARTRATE, PARACETAMOL) [Concomitant]
  13. LIPITOR (ATORVASTATIN CALCIUM) [Concomitant]
  14. ZELNORM (TEGASEROD MALEATE) [Concomitant]
  15. PENLAC (CICLOPIROX) [Concomitant]
  16. FLUOXETINE (FLUOXETINE) [Concomitant]

REACTIONS (6)
  - Femur fracture [None]
  - Fall [None]
  - Fracture displacement [None]
  - Bone disorder [None]
  - Low turnover osteopathy [None]
  - Pain [None]
